FAERS Safety Report 6440127-6 (Version None)
Quarter: 2009Q4

REPORT INFORMATION
  Report Type: 
  Country: None (occurrence: None)
  Receive Date: 20091113
  Receipt Date: 20090112
  Transmission Date: 20100525
  Serious: No
  Sender: FDA-Public Use
  Company Number: A0763247A

PATIENT
  Age: 80 Year
  Sex: Male

DRUGS (3)
  1. COREG [Suspect]
     Route: 065
  2. ACE INHIBITOR [Concomitant]
  3. DIURETIC [Concomitant]

REACTIONS (3)
  - DYSPNOEA [None]
  - MIDDLE INSOMNIA [None]
  - SWELLING [None]
